FAERS Safety Report 13977512 (Version 1)
Quarter: 2017Q3

REPORT INFORMATION
  Report Type: Spontaneous
  Country: DE (occurrence: DE)
  Receive Date: 20170915
  Receipt Date: 20170915
  Transmission Date: 20171128
  Serious: Yes (Hospitalization, Other)
  Sender: FDA-Public Use
  Company Number: DE-TEVA-804148GER

PATIENT
  Age: 69 Year
  Sex: Female

DRUGS (2)
  1. BISOPROLOL-RATIOPHARM 5 MG TABLETTEN [Suspect]
     Active Substance: BISOPROLOL
     Indication: HYPERTENSION
     Dosage: 10 MILLIGRAM DAILY;
     Route: 048
     Dates: start: 2002, end: 20170809
  2. BISOPROLOL-RATIOPHARM 5 MG TABLETTEN [Suspect]
     Active Substance: BISOPROLOL
     Dosage: 10 MILLIGRAM DAILY; THERAPY WAS RESTARTED AFTER SECOND HOSPITALISATION
     Route: 048
     Dates: start: 2017, end: 2017

REACTIONS (7)
  - Fall [Unknown]
  - Head injury [Unknown]
  - Hypertensive crisis [Recovered/Resolved]
  - Rebound effect [Recovered/Resolved]
  - Heart rate decreased [Unknown]
  - Bradycardia [Unknown]
  - Feeling cold [Unknown]

NARRATIVE: CASE EVENT DATE: 20170809
